FAERS Safety Report 15023245 (Version 1)
Quarter: 2018Q2

REPORT INFORMATION
  Report Type: Spontaneous
  Country: US (occurrence: US)
  Receive Date: 20180618
  Receipt Date: 20180618
  Transmission Date: 20180711
  Serious: Yes (Other)
  Sender: FDA-Public Use
  Company Number: US-TEVA-2018-US-906827

PATIENT
  Sex: Female

DRUGS (1)
  1. CLONAZEPAM. [Suspect]
     Active Substance: CLONAZEPAM
     Indication: PANIC ATTACK
     Route: 065

REACTIONS (11)
  - Heart rate increased [Unknown]
  - Insomnia [Unknown]
  - Tachycardia [Unknown]
  - Influenza [Unknown]
  - Drug abuser [Unknown]
  - Suicidal behaviour [Recovered/Resolved]
  - Withdrawal syndrome [Unknown]
  - Wrong technique in product usage process [Unknown]
  - Malaise [Unknown]
  - Drug ineffective for unapproved indication [Unknown]
  - Drug prescribing error [Unknown]
